FAERS Safety Report 6169047-1 (Version None)
Quarter: 2009Q2

REPORT INFORMATION
  Report Type: 
  Country: None (occurrence: None)
  Receive Date: 20090427
  Receipt Date: 20090416
  Transmission Date: 20091009
  Serious: Yes (Hospitalization)
  Sender: FDA-Public Use
  Company Number: ES-PFIZER INC-2009200259

PATIENT

DRUGS (5)
  1. SUNITINIB MALATE [Suspect]
     Indication: RENAL CELL CARCINOMA
     Dosage: UNK
     Route: 048
     Dates: start: 20090318
  2. FLUDROCORTISONE [Concomitant]
     Dosage: UNK
     Dates: start: 20080416
  3. HYDROCORTISONE [Concomitant]
     Dosage: UNK
     Dates: start: 20080416
  4. TENORETIC 100 [Concomitant]
  5. AMLODIPINE/VALSARTAN [Concomitant]

REACTIONS (1)
  - PRESYNCOPE [None]
